FAERS Safety Report 21376772 (Version 3)
Quarter: 2022Q4

REPORT INFORMATION
  Report Type: Report from Study
  Country: US (occurrence: US)
  Receive Date: 20220926
  Receipt Date: 20221110
  Transmission Date: 20230113
  Serious: Yes (Other)
  Sender: FDA-Public Use
  Company Number: US-NOVARTISPH-NVSC2022US216677

PATIENT
  Age: 78 Year
  Sex: Female

DRUGS (1)
  1. LEQVIO [Suspect]
     Active Substance: INCLISIRAN SODIUM
     Indication: Product used for unknown indication
     Dosage: UNK
     Route: 058
     Dates: start: 20220913

REACTIONS (9)
  - Acquired diaphragmatic eventration [Unknown]
  - Back pain [Unknown]
  - Dysstasia [Unknown]
  - Joint dislocation [Unknown]
  - Hypoaesthesia [Unknown]
  - Pruritus [Unknown]
  - Cough [Unknown]
  - Dyspnoea [Unknown]
  - Arthralgia [Unknown]

NARRATIVE: CASE EVENT DATE: 20220913
